FAERS Safety Report 10219233 (Version 1)
Quarter: 2014Q2

REPORT INFORMATION
  Report Type: Spontaneous
  Country: US (occurrence: US)
  Receive Date: 20140605
  Receipt Date: 20140605
  Transmission Date: 20141212
  Serious: Yes (Other)
  Sender: FDA-Public Use
  Company Number: US-TEVA-485769USA

PATIENT
  Sex: Female

DRUGS (1)
  1. COPAXONE [Suspect]
     Indication: MULTIPLE SCLEROSIS
     Dates: start: 20040603, end: 20110530

REACTIONS (3)
  - Multiple sclerosis relapse [Unknown]
  - Optic neuritis [Unknown]
  - Blindness unilateral [Not Recovered/Not Resolved]
